FAERS Safety Report 20155248 (Version 1)
Quarter: 2021Q4

REPORT INFORMATION
  Report Type: Spontaneous
  Country: US (occurrence: None)
  Receive Date: 20211207
  Receipt Date: 20211207
  Transmission Date: 20220303
  Serious: No
  Sender: FDA-Public Use
  Company Number: 2021A816527

PATIENT

DRUGS (2)
  1. CALQUENCE [Interacting]
     Active Substance: ACALABRUTINIB
     Indication: Chronic lymphocytic leukaemia
     Dosage: 100MG
     Route: 048
  2. DIFLUCAN [Interacting]
     Active Substance: FLUCONAZOLE
     Route: 065

REACTIONS (1)
  - Drug interaction [Unknown]
